FAERS Safety Report 26086400 (Version 1)
Quarter: 2025Q4

REPORT INFORMATION
  Report Type: Spontaneous
  Country: CN (occurrence: CN)
  Receive Date: 20251125
  Receipt Date: 20251125
  Transmission Date: 20260118
  Serious: Yes (Hospitalization)
  Sender: SANOFI AVENTIS
  Company Number: CN-SA-2025SA346569

PATIENT
  Age: 36 Year
  Sex: Female
  Weight: 49 kg

DRUGS (4)
  1. ENOXAPARIN SODIUM [Suspect]
     Active Substance: ENOXAPARIN SODIUM
     Indication: Hypercoagulation
     Dosage: 0.6 ML, QD
     Route: 058
     Dates: start: 20251102, end: 20251103
  2. ENOXAPARIN SODIUM [Suspect]
     Active Substance: ENOXAPARIN SODIUM
     Indication: Autoimmune disorder
  3. NADROPARIN CALCIUM [Suspect]
     Active Substance: NADROPARIN CALCIUM
     Indication: Hypercoagulation
     Dosage: 0.6 ML, QD
     Route: 058
     Dates: start: 20250904, end: 20251101
  4. NADROPARIN CALCIUM [Suspect]
     Active Substance: NADROPARIN CALCIUM
     Indication: Autoimmune disorder

REACTIONS (5)
  - Rash erythematous [Recovering/Resolving]
  - Peripheral swelling [Recovering/Resolving]
  - Pain in extremity [Recovering/Resolving]
  - Pruritus [Recovering/Resolving]
  - Erythema [Recovering/Resolving]

NARRATIVE: CASE EVENT DATE: 20250904
